FAERS Safety Report 11559041 (Version 2)
Quarter: 2015Q4

REPORT INFORMATION
  Report Type: Spontaneous
  Country: US (occurrence: US)
  Receive Date: 20150916
  Receipt Date: 20151104
  Transmission Date: 20160304
  Serious: No
  Sender: FDA-Public Use
  Company Number: US-ELI_LILLY_AND_COMPANY-US200807006241

PATIENT
  Sex: Female

DRUGS (8)
  1. FORTEO [Suspect]
     Active Substance: TERIPARATIDE
     Dosage: 20 UG, QOD
     Dates: start: 201012
  2. FORTEO [Suspect]
     Active Substance: TERIPARATIDE
     Dosage: 20 UG, DAILY (1/D)
     Dates: start: 201008
  3. CALCIUM [Concomitant]
     Active Substance: CALCIUM
  4. METHOTREXATE [Concomitant]
     Active Substance: METHOTREXATE
  5. BIOTIN [Concomitant]
     Active Substance: BIOTIN
  6. FORTEO [Suspect]
     Active Substance: TERIPARATIDE
     Indication: OSTEOPOROSIS
     Dosage: 20 UG, DAILY (1/D)
     Dates: start: 2009, end: 2009
  7. VITAMIN D [Concomitant]
     Active Substance: CHOLECALCIFEROL
  8. PLAQUENIL [Concomitant]
     Active Substance: HYDROXYCHLOROQUINE SULFATE
     Indication: RHEUMATOID ARTHRITIS

REACTIONS (9)
  - Disability [Unknown]
  - Memory impairment [Unknown]
  - Back pain [Not Recovered/Not Resolved]
  - Arthropathy [Unknown]
  - Musculoskeletal discomfort [Unknown]
  - Pain [Unknown]
  - Medication error [Unknown]
  - Arthralgia [Unknown]
  - Pain in extremity [Unknown]
